FAERS Safety Report 6108467-8 (Version None)
Quarter: 2009Q1

REPORT INFORMATION
  Report Type: 
  Country: None (occurrence: None)
  Receive Date: 20090309
  Receipt Date: 20090213
  Transmission Date: 20090719
  Serious: Yes (Other)
  Sender: FDA-Public Use
  Company Number: ES-B.I. PHARMACEUTICALS,INC./RIDGEFIELD-2009-ES-00016ES

PATIENT
  Age: 54 Year
  Sex: Male

DRUGS (6)
  1. VIRAMUNE [Suspect]
     Indication: HIV INFECTION
     Dosage: 200MG
     Route: 048
     Dates: start: 20080117, end: 20081014
  2. TRUVADA [Suspect]
     Indication: HIV INFECTION
     Dosage: 200 MG ENTRICITABINA/245 MG TENOFOVIR
     Route: 048
     Dates: start: 20071224, end: 20081014
  3. SUSTIVA [Suspect]
     Indication: HIV INFECTION
     Route: 048
     Dates: start: 20071210, end: 20080117
  4. ZIDOVUDINA [Concomitant]
     Indication: HIV INFECTION
     Dosage: 500MG
     Route: 048
     Dates: start: 20081014
  5. NEVIRAPINE [Concomitant]
     Indication: HIV INFECTION
     Dosage: 400MG
     Route: 048
     Dates: start: 20081014
  6. VIDEX [Concomitant]
     Indication: HIV INFECTION
     Dosage: 400MG
     Route: 048
     Dates: start: 20081014

REACTIONS (4)
  - ABNORMAL DREAMS [None]
  - NIGHTMARE [None]
  - RESTLESSNESS [None]
  - THINKING ABNORMAL [None]
